FAERS Safety Report 4456112-X (Version None)
Quarter: 2004Q3

REPORT INFORMATION
  Report Type: 
  Country: None (occurrence: None)
  Receive Date: 20040920
  Receipt Date: 20040906
  Transmission Date: 20050211
  Serious: Yes (Hospitalization)
  Sender: FDA-Public Use
  Company Number: 2004063417

PATIENT
  Age: 22 Year
  Sex: Female

DRUGS (3)
  1. VIAGRA [Suspect]
     Indication: ILL-DEFINED DISORDER
     Dosage: 500 MG (50 MG, 1 IN 1 D), ORAL
     Route: 048
     Dates: start: 20020101
  2. CITALOPRAM [Concomitant]
  3. PROMETHAZINE HYDROCHLORIDE TAB [Concomitant]

REACTIONS (1)
  - OVERDOSE [None]
